FAERS Safety Report 23377865 (Version 2)
Quarter: 2024Q1

REPORT INFORMATION
  Report Type: Spontaneous
  Country: US (occurrence: US)
  Receive Date: 20240108
  Receipt Date: 20240223
  Transmission Date: 20240409
  Serious: Yes (Hospitalization)
  Sender: FDA-Public Use
  Company Number: US-PFIZER INC-PV202300209811

PATIENT
  Age: 62 Year
  Sex: Male

DRUGS (3)
  1. RETACRIT [Suspect]
     Active Substance: EPOETIN ALFA-EPBX
     Dosage: 0.8 MLS (8,000 UNITS TOTAL) INTO THE SKIN 3 (THREE) TIMES A WEEK FOR 12 DOSES
     Route: 058
  2. PROCARDIA [Concomitant]
     Active Substance: NIFEDIPINE
     Indication: Blood pressure abnormal
     Dosage: TAKE 2 TABLETS (60 MG) TWICE DAILY
  3. PROTONIX [Concomitant]
     Active Substance: PANTOPRAZOLE SODIUM
     Indication: Abdominal discomfort
     Dosage: TAKE 1 TABLET (40 MG TOTAL) BY MOUTH EVERY MORNING ON EMPTY STOMACH
     Route: 048

REACTIONS (6)
  - Mental disorder [Unknown]
  - Renal transplant [Recovered/Resolved]
  - Renal function test abnormal [Not Recovered/Not Resolved]
  - Drug level increased [Unknown]
  - Drug clearance decreased [Unknown]
  - Anaemia [Unknown]

NARRATIVE: CASE EVENT DATE: 20231011
